FAERS Safety Report 6750449-7 (Version None)
Quarter: 2010Q2

REPORT INFORMATION
  Report Type: 
  Country: None (occurrence: None)
  Receive Date: 20100527
  Receipt Date: 20091013
  Transmission Date: 20101027
  Serious: Yes (Other)
  Sender: FDA-Public Use
  Company Number: 2009JP006487

PATIENT
  Age: 67 Year
  Sex: Female

DRUGS (2)
  1. FUNGUARD (MICAFUNGIN) INJECTION [Suspect]
     Dosage: IV DRIP
     Route: 041
  2. TIENAM (MIPENEM, CILASTATIN SODIUM) FORMULATION UNKNOWN [Suspect]

REACTIONS (1)
  - NEPHROGENIC DIABETES INSIPIDUS [None]
